FAERS Safety Report 5350885-X (Version None)
Quarter: 2007Q2

REPORT INFORMATION
  Report Type: 
  Country: None (occurrence: None)
  Receive Date: 20070608
  Receipt Date: 20070601
  Transmission Date: 20071010
  Serious: Yes (Other)
  Sender: FDA-Public Use
  Company Number: B0474258A

PATIENT
  Age: 73 Year
  Sex: Male

DRUGS (2)
  1. LAMICTAL [Suspect]
     Indication: EPILEPSY
     Route: 048
     Dates: start: 20060701, end: 20070401
  2. OXASCAND [Concomitant]
     Route: 065

REACTIONS (6)
  - ASTHENIA [None]
  - COGWHEEL RIGIDITY [None]
  - JOINT CONTRACTURE [None]
  - MUSCLE SPASTICITY [None]
  - PARKINSON'S DISEASE [None]
  - TALIPES [None]
